FAERS Safety Report 20697252 (Version 1)
Quarter: 2022Q2

REPORT INFORMATION
  Report Type: Spontaneous
  Country: US (occurrence: US)
  Receive Date: 20220411
  Receipt Date: 20220411
  Transmission Date: 20220721
  Serious: No
  Sender: FDA-Public Use
  Company Number: US-BRISTOL-MYERS SQUIBB COMPANY-2022-015018

PATIENT
  Age: 80 Year
  Sex: Male
  Weight: 132.90 kg

DRUGS (1)
  1. REVLIMID [Suspect]
     Active Substance: LENALIDOMIDE
     Indication: Plasma cell myeloma
     Dosage: 14DAYSON/7DAYSOFF
     Route: 048
     Dates: start: 20211201

REACTIONS (1)
  - Cyst [Recovering/Resolving]
